FAERS Safety Report 5475888-6 (Version None)
Quarter: 2007Q3

REPORT INFORMATION
  Report Type: 
  Country: None (occurrence: None)
  Receive Date: 20070927
  Receipt Date: 20060707
  Transmission Date: 20080115
  Serious: Yes (Life-Threatening)
  Sender: FDA-Public Use
  Company Number: 06H-163-0309467-00

PATIENT
  Age: 1 Day
  Sex: Male

DRUGS (1)
  1. DEXTROSE [Suspect]
     Indication: DRUG USE FOR UNKNOWN INDICATION
     Dosage: 6ML/HR, CONTINUOUS INFUSION, INTRAVENOUS
     Route: 042
     Dates: start: 20060707, end: 20060707

REACTIONS (2)
  - HYPERGLYCAEMIA [None]
  - OVERDOSE [None]
